FAERS Safety Report 24666524 (Version 2)
Quarter: 2025Q4

REPORT INFORMATION
  Report Type: Spontaneous
  Country: US (occurrence: US)
  Receive Date: 20241126
  Receipt Date: 20251229
  Transmission Date: 20260117
  Serious: No
  Sender: SANOFI AVENTIS
  Company Number: US-SA-2024SA342607

PATIENT
  Sex: Male
  Weight: 26.95 kg

DRUGS (3)
  1. DUPIXENT [Suspect]
     Active Substance: DUPILUMAB
     Indication: Eosinophilic oesophagitis
     Dosage: 200 MG, QOW
     Route: 058
  2. DUPIXENT [Suspect]
     Active Substance: DUPILUMAB
     Indication: Illness
  3. ILARIS [Concomitant]
     Active Substance: CANAKINUMAB

REACTIONS (3)
  - Illness [Unknown]
  - Product dose omission issue [Unknown]
  - Injection site reaction [Unknown]
